FAERS Safety Report 24314828 (Version 3)
Quarter: 2024Q4

REPORT INFORMATION
  Report Type: Report from Study
  Country: US (occurrence: US)
  Receive Date: 20240913
  Receipt Date: 20241224
  Transmission Date: 20250114
  Serious: Yes (Hospitalization, Other)
  Sender: JOHNSON AND JOHNSON
  Company Number: US-JNJFOC-20240916201

PATIENT
  Age: 48 Year
  Sex: Female

DRUGS (9)
  1. SPRAVATO [Suspect]
     Active Substance: ESKETAMINE
     Indication: Depression
     Route: 045
     Dates: start: 2019
  2. SPRAVATO [Suspect]
     Active Substance: ESKETAMINE
     Dosage: ^56 MG, 9 TOTAL DOSES^
     Route: 045
     Dates: start: 20200210, end: 20200310
  3. SPRAVATO [Suspect]
     Active Substance: ESKETAMINE
     Dosage: ^84 MG, 102 TOTAL DOSES^
     Route: 045
     Dates: start: 20200312, end: 20220503
  4. SPRAVATO [Suspect]
     Active Substance: ESKETAMINE
     Dosage: ^56 MG, 1 TOTAL DOSE^
     Route: 045
     Dates: start: 20220510, end: 20220510
  5. SPRAVATO [Suspect]
     Active Substance: ESKETAMINE
     Dosage: ^84 MG, 36 TOTAL DOSES^
     Route: 045
     Dates: start: 20220610, end: 20221129
  6. SPRAVATO [Suspect]
     Active Substance: ESKETAMINE
     Dosage: ^56 MG, 1 TOTAL DOSE^
     Route: 045
     Dates: start: 20221202, end: 20221202
  7. SPRAVATO [Suspect]
     Active Substance: ESKETAMINE
     Dosage: ^84 MG, 1 TOTAL DOSE^
     Route: 045
     Dates: start: 20221207, end: 20221207
  8. SPRAVATO [Suspect]
     Active Substance: ESKETAMINE
     Dosage: ^56 MG, 1 TOTAL DOSE^
     Route: 045
     Dates: start: 20221209, end: 20221209
  9. SPRAVATO [Suspect]
     Active Substance: ESKETAMINE
     Dosage: ^84 MG, 141 TOTAL DOSES^
     Route: 045
     Dates: start: 20221213, end: 20240906

REACTIONS (5)
  - Staphylococcal infection [Recovering/Resolving]
  - Spinal stenosis [Not Recovered/Not Resolved]
  - Depressed mood [Unknown]
  - Stress [Unknown]
  - Psychiatric symptom [Unknown]

NARRATIVE: CASE EVENT DATE: 20241207
